FAERS Safety Report 9768614 (Version 3)
Quarter: 2014Q2

REPORT INFORMATION
  Report Type: Spontaneous
  Country: US (occurrence: US)
  Receive Date: 20131218
  Receipt Date: 20140404
  Transmission Date: 20141212
  Serious: Yes (Hospitalization, Other)
  Sender: FDA-Public Use
  Company Number: US-JNJFOC-20131204674

PATIENT
  Age: 42 Year
  Sex: Female
  Weight: 81.65 kg

DRUGS (4)
  1. EXTRA STRENGTH TYLENOL [Suspect]
     Indication: TOOTHACHE
     Dosage: DAILY 2 EVERY 4- 6 HOURS
     Route: 065
     Dates: start: 20091208, end: 20091214
  2. EXTRA STRENGTH TYLENOL [Suspect]
     Indication: HEADACHE
     Dosage: DAILY 2 EVERY 4- 6 HOURS
     Route: 065
     Dates: start: 20091208, end: 20091214
  3. EXTRA STRENGTH TYLENOL [Suspect]
     Indication: TOOTH ABSCESS
     Dosage: DAILY 2 EVERY 4- 6 HOURS
     Route: 065
     Dates: start: 20091208, end: 20091214
  4. BIAXIN [Suspect]
     Indication: TOOTH ABSCESS
     Route: 065

REACTIONS (2)
  - Acute hepatic failure [Unknown]
  - Hepatitis acute [Unknown]
